FAERS Safety Report 17718118 (Version 1)
Quarter: 2020Q2

REPORT INFORMATION
  Report Type: Spontaneous
  Country: DK (occurrence: DK)
  Receive Date: 20200428
  Receipt Date: 20200428
  Transmission Date: 20200714
  Serious: Yes (Life-Threatening, Hospitalization)
  Sender: FDA-Public Use
  Company Number: NVSC2020DK113517

PATIENT
  Age: 74 Year
  Sex: Male

DRUGS (5)
  1. DISULFIRAM. [Concomitant]
     Active Substance: DISULFIRAM
     Indication: ALCOHOL ABUSE
     Dosage: 400 MG, QW (STRYKE)
     Route: 048
     Dates: start: 20180206
  2. ACETYLSALICYLIC ACID [Suspect]
     Active Substance: ASPIRIN
     Indication: ANTICOAGULANT THERAPY
     Dosage: 75 MG, QD (STYRKE)
     Route: 048
     Dates: start: 201908, end: 20200126
  3. GABAPENTIN. [Concomitant]
     Active Substance: GABAPENTIN
     Indication: PAIN
     Dosage: 1200 MG, QD (STYRKE)
     Route: 048
     Dates: start: 20190905
  4. OKSAZEPAM [Concomitant]
     Active Substance: OXAZEPAM
     Indication: SEDATIVE THERAPY
     Dosage: 30 MG, QD (STRYKE)
     Route: 048
     Dates: start: 20151001
  5. VENLAFAXINE [Concomitant]
     Active Substance: VENLAFAXINE HYDROCHLORIDE
     Indication: DEPRESSION
     Dosage: 300 MG, QD (STRYKE)
     Route: 048
     Dates: start: 20180312

REACTIONS (4)
  - Cerebral haemorrhage [Not Recovered/Not Resolved]
  - Facial paralysis [Not Recovered/Not Resolved]
  - Hemiplegia [Not Recovered/Not Resolved]
  - Dysarthria [Not Recovered/Not Resolved]

NARRATIVE: CASE EVENT DATE: 20200126
